FAERS Safety Report 12406862 (Version 1)
Quarter: 2016Q2

REPORT INFORMATION
  Report Type: Spontaneous
  Country: ES (occurrence: ES)
  Receive Date: 20160526
  Receipt Date: 20160526
  Transmission Date: 20160815
  Serious: Yes (Other)
  Sender: FDA-Public Use
  Company Number: ES-ASTRAZENECA-2016SE54471

PATIENT
  Age: 77 Year
  Sex: Female

DRUGS (2)
  1. NOLOTIL [Suspect]
     Active Substance: METAMIZOLE
     Route: 048
     Dates: start: 20160503
  2. NEXIUM [Suspect]
     Active Substance: ESOMEPRAZOLE MAGNESIUM
     Indication: ABDOMINAL PAIN
     Route: 048
     Dates: start: 20160503, end: 20160505

REACTIONS (2)
  - Oropharyngeal discomfort [Recovering/Resolving]
  - Glossitis [Recovering/Resolving]

NARRATIVE: CASE EVENT DATE: 20160505
